FAERS Safety Report 4416955-5 (Version None)
Quarter: 2004Q3

REPORT INFORMATION
  Report Type: 
  Country: None (occurrence: None)
  Receive Date: 20040802
  Receipt Date: 20040726
  Transmission Date: 20050211
  Serious: No
  Sender: FDA-Public Use
  Company Number: HQWYE527021JUN04

PATIENT
  Age: 36 Year
  Sex: Male

DRUGS (1)
  1. EFFEXOR XR [Suspect]

REACTIONS (3)
  - CONTUSION [None]
  - PAIN [None]
  - THROMBOSIS [None]
